FAERS Safety Report 11217819 (Version 1)
Quarter: 2015Q2

REPORT INFORMATION
  Report Type: Spontaneous
  Country: CA (occurrence: CA)
  Receive Date: 20150625
  Receipt Date: 20150625
  Transmission Date: 20150821
  Serious: Yes (Hospitalization, Other)
  Sender: FDA-Public Use
  Company Number: CA-009507513-1506CAN010419

PATIENT
  Sex: Male

DRUGS (2)
  1. TEMODAL [Suspect]
     Active Substance: TEMOZOLOMIDE
     Dosage: CYCLE 2-6 - 200 MG DAILY X 5 DAYS
     Route: 048
     Dates: start: 201407, end: 201504
  2. TEMODAL [Suspect]
     Active Substance: TEMOZOLOMIDE
     Indication: GLIOBLASTOMA MULTIFORME
     Dosage: CYCLE 1 - 150 MG DAILY X 5 DAYS
     Route: 048
     Dates: start: 201407, end: 201504

REACTIONS (3)
  - Glioblastoma multiforme [Unknown]
  - Adverse event [Unknown]
  - Therapeutic response decreased [Unknown]
